FAERS Safety Report 5346796-6 (Version None)
Quarter: 2007Q2

REPORT INFORMATION
  Report Type: 
  Country: None (occurrence: None)
  Receive Date: 20070501
  Receipt Date: 20070221
  Transmission Date: 20071010
  Serious: No
  Sender: FDA-Public Use
  Company Number: VNL_0431_2007

PATIENT
  Age: 69 Year
  Sex: Male
  Weight: 112.4921 kg

DRUGS (6)
  1. APOKYN [Suspect]
     Indication: PARKINSON'S DISEASE
     Dosage: 0.1 ML SC
     Route: 058
     Dates: start: 20070216, end: 20070219
  2. APOKYN [Suspect]
     Indication: PARKINSON'S DISEASE
     Dosage: 0.2 ML SC
     Route: 058
     Dates: start: 20070219, end: 20070222
  3. SINEMET [Concomitant]
  4. REQUIP [Concomitant]
  5. ATACAND [Concomitant]
  6. TIGAN [Concomitant]

REACTIONS (4)
  - INFLUENZA [None]
  - NAUSEA [None]
  - RHINORRHOEA [None]
  - VOMITING [None]
